FAERS Safety Report 23515430 (Version 1)
Quarter: 2024Q1

REPORT INFORMATION
  Report Type: 
  Country: None (occurrence: None)
  Receive Date: 20240213
  Receipt Date: 20240213
  Transmission Date: 20240410
  Serious: No
  Sender: FDA-Public Use
  Company Number: CH-ROCHE-3467718

PATIENT

DRUGS (5)
  1. VABYSMO [Suspect]
     Active Substance: FARICIMAB\FARICIMAB-SVOA
     Dates: start: 202311
  2. EYLEA [Concomitant]
     Active Substance: AFLIBERCEPT
     Dates: start: 202307
  3. ASPIRIN [Concomitant]
     Active Substance: ASPIRIN
  4. ERGOCALCIFEROL [Concomitant]
     Active Substance: ERGOCALCIFEROL
  5. FOLIC ACID [Concomitant]
     Active Substance: FOLIC ACID

REACTIONS (1)
  - Endophthalmitis [None]
